FAERS Safety Report 4782358-7 (Version None)
Quarter: 2005Q3

REPORT INFORMATION
  Report Type: 
  Country: None (occurrence: None)
  Receive Date: 20050929
  Receipt Date: 20050920
  Transmission Date: 20060218
  Serious: Yes (Death)
  Sender: FDA-Public Use
  Company Number: KR-JNJFOC-20050903305

PATIENT
  Sex: Female
  Weight: 50 kg

DRUGS (8)
  1. REMINYL PR [Suspect]
     Route: 048
  2. REMINYL PR [Suspect]
     Indication: DEMENTIA ALZHEIMER'S TYPE
     Route: 048
  3. RISPERDAL [Concomitant]
     Route: 048
  4. IBUSTRIN [Concomitant]
     Indication: PROPHYLAXIS
     Route: 048
  5. CAPOZIT [Concomitant]
     Route: 048
  6. CAPOZIT [Concomitant]
     Indication: BLOOD PRESSURE
     Route: 048
  7. ZYREN [Concomitant]
     Indication: SLEEP DISORDER
     Route: 048
  8. WONCORAN [Concomitant]
     Indication: LIVER DISORDER
     Route: 048

REACTIONS (2)
  - CARDIAC ARREST [None]
  - PNEUMONIA ASPIRATION [None]
